FAERS Safety Report 6230788-9 (Version None)
Quarter: 2009Q2

REPORT INFORMATION
  Report Type: 
  Country: None (occurrence: None)
  Receive Date: 20090616
  Receipt Date: 20090603
  Transmission Date: 20091009
  Serious: Yes (Hospitalization)
  Sender: FDA-Public Use
  Company Number: FI-PFIZER INC-2009221774

PATIENT
  Age: 69 Year

DRUGS (12)
  1. CHAMPIX [Suspect]
     Indication: SMOKING CESSATION THERAPY
     Dosage: 0.5 MG, 1X/DAY
     Route: 048
     Dates: start: 20090321, end: 20090324
  2. COZAAR [Concomitant]
     Dosage: 100MG/25MG
     Route: 048
  3. ORLOC [Concomitant]
     Dosage: 10 MG, 2X/DAY
     Route: 048
  4. ZANIDIP [Concomitant]
     Dosage: 20 MG, 1X/DAY
     Route: 048
  5. DIFORMIN RETARD [Concomitant]
     Dosage: 1500 MG, 2X/DAY
     Route: 048
  6. SIMVASTATIN RATIOPHARM [Concomitant]
     Dosage: 40 MG, 1X/DAY
     Route: 048
  7. OPAMOX [Concomitant]
     Dosage: 15MG OR 30MG
     Route: 048
     Dates: end: 20090301
  8. SERETIDE DISKUS [Concomitant]
     Dosage: 500MICROG/50MICROG
     Route: 055
  9. PRIMASPAN [Concomitant]
     Dosage: 100 MG, 1X/DAY
     Route: 048
  10. VENTOLIN DISKUS [Concomitant]
     Dosage: 200MICROG
     Route: 055
  11. VALERIAN EXTRACT [Concomitant]
     Dosage: UNK
     Route: 048
     Dates: end: 20090301
  12. ECHINACEA PURPUREA [Concomitant]
     Dosage: UNK
     Route: 048
     Dates: end: 20090301

REACTIONS (5)
  - ACUTE MYOCARDIAL INFARCTION [None]
  - DRUG TOXICITY [None]
  - HEPATIC ENZYME INCREASED [None]
  - LOSS OF CONSCIOUSNESS [None]
  - RESPIRATORY FAILURE [None]
